FAERS Safety Report 14764502 (Version 3)
Quarter: 2019Q4

REPORT INFORMATION
  Report Type: Spontaneous
  Country: US (occurrence: US)
  Receive Date: 20180416
  Receipt Date: 20191106
  Transmission Date: 20200122
  Serious: Yes (Other)
  Sender: FDA-Public Use
  Company Number: US-PFIZER INC-2018150749

PATIENT
  Age: 29 Year
  Sex: Female

DRUGS (1)
  1. VARENICLINE TARTRATE [Suspect]
     Active Substance: VARENICLINE TARTRATE
     Indication: SMOKING CESSATION THERAPY
     Dosage: UNK

REACTIONS (2)
  - Generalised tonic-clonic seizure [Recovered/Resolved]
  - Insomnia [Recovered/Resolved]
